FAERS Safety Report 5640600-4 (Version None)
Quarter: 2008Q1

REPORT INFORMATION
  Report Type: 
  Country: None (occurrence: None)
  Receive Date: 20080227
  Receipt Date: 20080220
  Transmission Date: 20080703
  Serious: Yes (Hospitalization)
  Sender: FDA-Public Use
  Company Number: PHRM2008FR00869

PATIENT
  Age: 62 Year
  Sex: Female

DRUGS (6)
  1. ARAVA [Suspect]
     Indication: RHEUMATOID ARTHRITIS
     Dates: start: 20070801, end: 20071117
  2. SYMBICORT [Suspect]
     Indication: ASTHMA
  3. ZADITEN [Suspect]
     Indication: ASTHMA
     Dosage: 2 MG, QD
     Route: 048
  4. AIROMIR [Suspect]
     Indication: ASTHMA
  5. DOLIPRANE [Suspect]
     Indication: PAIN
  6. COLESTYRAMINE [Concomitant]
     Route: 048
     Dates: start: 20080128

REACTIONS (3)
  - EOSINOPHILIA [None]
  - PRURITUS [None]
  - SCRATCH [None]
